FAERS Safety Report 25500867 (Version 1)
Quarter: 2025Q3

REPORT INFORMATION
  Report Type: Report from Study
  Country: EU (occurrence: EU)
  Receive Date: 20250701
  Receipt Date: 20250701
  Transmission Date: 20251021
  Serious: Yes (Congenital Anomaly)
  Sender: MYLAN
  Company Number: EU-MYLANLABS-2025M1054077

PATIENT

DRUGS (32)
  1. LOPINAVIR\RITONAVIR [Suspect]
     Active Substance: LOPINAVIR\RITONAVIR
     Indication: Product used for unknown indication
  2. LOPINAVIR\RITONAVIR [Suspect]
     Active Substance: LOPINAVIR\RITONAVIR
  3. LOPINAVIR\RITONAVIR [Suspect]
     Active Substance: LOPINAVIR\RITONAVIR
     Route: 064
  4. LOPINAVIR\RITONAVIR [Suspect]
     Active Substance: LOPINAVIR\RITONAVIR
     Route: 064
  5. LOPINAVIR\RITONAVIR [Suspect]
     Active Substance: LOPINAVIR\RITONAVIR
  6. LOPINAVIR\RITONAVIR [Suspect]
     Active Substance: LOPINAVIR\RITONAVIR
  7. LOPINAVIR\RITONAVIR [Suspect]
     Active Substance: LOPINAVIR\RITONAVIR
     Route: 064
  8. LOPINAVIR\RITONAVIR [Suspect]
     Active Substance: LOPINAVIR\RITONAVIR
     Route: 064
  9. DARUNAVIR [Suspect]
     Active Substance: DARUNAVIR
     Indication: Product used for unknown indication
     Dosage: UNK, QD (TOTAL DAILY DOSE 1200)
  10. DARUNAVIR [Suspect]
     Active Substance: DARUNAVIR
     Dosage: UNK, QD (TOTAL DAILY DOSE 1200)
  11. DARUNAVIR [Suspect]
     Active Substance: DARUNAVIR
     Dosage: UNK, QD (TOTAL DAILY DOSE 1200)
     Route: 064
  12. DARUNAVIR [Suspect]
     Active Substance: DARUNAVIR
     Dosage: UNK, QD (TOTAL DAILY DOSE 1200)
     Route: 064
  13. DARUNAVIR [Suspect]
     Active Substance: DARUNAVIR
     Dosage: UNK, QD (TOTAL DAILY DOSE 1200)
  14. DARUNAVIR [Suspect]
     Active Substance: DARUNAVIR
     Dosage: UNK, QD (TOTAL DAILY DOSE 1200)
  15. DARUNAVIR [Suspect]
     Active Substance: DARUNAVIR
     Dosage: UNK, QD (TOTAL DAILY DOSE 1200)
     Route: 064
  16. DARUNAVIR [Suspect]
     Active Substance: DARUNAVIR
     Dosage: UNK, QD (TOTAL DAILY DOSE 1200)
     Route: 064
  17. ZIDOVUDINE [Suspect]
     Active Substance: ZIDOVUDINE
     Indication: Product used for unknown indication
  18. ZIDOVUDINE [Suspect]
     Active Substance: ZIDOVUDINE
  19. ZIDOVUDINE [Suspect]
     Active Substance: ZIDOVUDINE
     Route: 064
  20. ZIDOVUDINE [Suspect]
     Active Substance: ZIDOVUDINE
     Route: 064
  21. ZIDOVUDINE [Suspect]
     Active Substance: ZIDOVUDINE
  22. ZIDOVUDINE [Suspect]
     Active Substance: ZIDOVUDINE
  23. ZIDOVUDINE [Suspect]
     Active Substance: ZIDOVUDINE
     Route: 064
  24. ZIDOVUDINE [Suspect]
     Active Substance: ZIDOVUDINE
     Route: 064
  25. ENFUVIRTIDE [Suspect]
     Active Substance: ENFUVIRTIDE
     Indication: Product used for unknown indication
     Dosage: UNK, QD (TOTAL DAILY DOSE 800)
  26. ENFUVIRTIDE [Suspect]
     Active Substance: ENFUVIRTIDE
     Dosage: UNK, QD (TOTAL DAILY DOSE 800)
  27. ENFUVIRTIDE [Suspect]
     Active Substance: ENFUVIRTIDE
     Dosage: UNK, QD (TOTAL DAILY DOSE 800)
     Route: 064
  28. ENFUVIRTIDE [Suspect]
     Active Substance: ENFUVIRTIDE
     Dosage: UNK, QD (TOTAL DAILY DOSE 800)
     Route: 064
  29. ENFUVIRTIDE [Suspect]
     Active Substance: ENFUVIRTIDE
     Dosage: UNK, QD (TOTAL DAILY DOSE 800)
  30. ENFUVIRTIDE [Suspect]
     Active Substance: ENFUVIRTIDE
     Dosage: UNK, QD (TOTAL DAILY DOSE 800)
  31. ENFUVIRTIDE [Suspect]
     Active Substance: ENFUVIRTIDE
     Dosage: UNK, QD (TOTAL DAILY DOSE 800)
     Route: 064
  32. ENFUVIRTIDE [Suspect]
     Active Substance: ENFUVIRTIDE
     Dosage: UNK, QD (TOTAL DAILY DOSE 800)
     Route: 064

REACTIONS (2)
  - Plagiocephaly [Unknown]
  - Foetal exposure during pregnancy [Recovered/Resolved]
